FAERS Safety Report 6933673-X (Version None)
Quarter: 2010Q3

REPORT INFORMATION
  Report Type: 
  Country: None (occurrence: None)
  Receive Date: 20100820
  Receipt Date: 20100812
  Transmission Date: 20110219
  Serious: Yes (Other)
  Sender: FDA-Public Use
  Company Number: US-PERRIGO-10US012173

PATIENT
  Sex: Male
  Weight: 13.605 kg

DRUGS (3)
  1. ACETAMINOPHEN CHILD CHERRY 32 MG/ML 175 [Suspect]
     Indication: PYREXIA
     Dosage: 2880 MG, SINGLE
     Route: 048
     Dates: start: 20100807, end: 20100807
  2. ACETAMINOPHEN CHILD CHERRY 32 MG/ML 175 [Suspect]
     Indication: ACCIDENTAL DRUG INTAKE BY CHILD
     Dosage: 1 TSP, SINGLE
     Route: 048
     Dates: start: 20100807, end: 20100807
  3. MULTI-VITAMIN [Concomitant]
     Indication: MEDICAL DIET
     Dosage: UNKNOWN MG, DAILY
     Route: 048

REACTIONS (4)
  - ACCIDENTAL DRUG INTAKE BY CHILD [None]
  - DIARRHOEA [None]
  - OVERDOSE [None]
  - VOMITING [None]
